FAERS Safety Report 8607043-2 (Version None)
Quarter: 2012Q3

REPORT INFORMATION
  Report Type: 
  Country: None (occurrence: None)
  Receive Date: 20120821
  Receipt Date: 20120817
  Transmission Date: 20120928
  Serious: Yes (Hospitalization)
  Sender: FDA-Public Use
  Company Number: US-AMGEN-USASP2012052283

PATIENT
  Sex: Female

DRUGS (2)
  1. ANTINEOPLASTIC AGENTS [Concomitant]
     Indication: SMALL CELL CARCINOMA
  2. NEULASTA [Suspect]
     Indication: CHEMOTHERAPY

REACTIONS (4)
  - ASTHENIA [None]
  - BLADDER CANCER [None]
  - DIZZINESS [None]
  - VISUAL IMPAIRMENT [None]
